FAERS Safety Report 11704637 (Version 1)
Quarter: 2015Q4

REPORT INFORMATION
  Report Type: Spontaneous
  Country: US (occurrence: US)
  Receive Date: 20151106
  Receipt Date: 20151106
  Transmission Date: 20160304
  Serious: No
  Sender: FDA-Public Use
  Company Number: US-BAYER-2015-460673

PATIENT
  Age: 36 Year
  Sex: Female

DRUGS (1)
  1. MIRENA [Suspect]
     Active Substance: LEVONORGESTREL
     Indication: CONTRACEPTION
     Dosage: UNK
     Route: 015
     Dates: start: 20151023, end: 20151023

REACTIONS (4)
  - Device deployment issue [None]
  - Device difficult to use [None]
  - Procedural pain [None]
  - Intentional device misuse [None]

NARRATIVE: CASE EVENT DATE: 20151023
